FAERS Safety Report 8563897-X (Version None)
Quarter: 2012Q3

REPORT INFORMATION
  Report Type: 
  Country: None (occurrence: None)
  Receive Date: 20120727
  Receipt Date: 20120727
  Transmission Date: 20120928
  Serious: Yes (Life-Threatening, Hospitalization)
  Sender: FDA-Public Use
  Company Number: None

PATIENT
  Age: 69 Year
  Sex: Male
  Weight: 81.5567 kg

DRUGS (2)
  1. EFFIENT [Suspect]
     Indication: STENT PLACEMENT
     Dosage: 10 MG ONCE DAILY PO
     Route: 048
     Dates: start: 20110909, end: 20110911
  2. ASPIRIN [Suspect]
     Indication: STENT PLACEMENT
     Dosage: 81 MG ONCE DAILY PO
     Route: 048
     Dates: start: 20110909, end: 20110911

REACTIONS (2)
  - SUBARACHNOID HAEMORRHAGE [None]
  - CEREBRAL HAEMORRHAGE [None]
